FAERS Safety Report 9659367 (Version 2)
Quarter: 2014Q2

REPORT INFORMATION
  Report Type: Spontaneous
  Country: CN (occurrence: CN)
  Receive Date: 20131031
  Receipt Date: 20140422
  Transmission Date: 20141212
  Serious: Yes (Other)
  Sender: FDA-Public Use
  Company Number: CN-JNJFOC-20131015930

PATIENT
  Age: 40 Year
  Sex: Female

DRUGS (1)
  1. SPORANOX [Suspect]
     Indication: TINEA INFECTION
     Route: 048
     Dates: start: 20131024

REACTIONS (4)
  - Amaurosis [Recovered/Resolved]
  - Haematemesis [Recovered/Resolved]
  - Palpitations [Recovered/Resolved]
  - Nausea [Recovered/Resolved]
